FAERS Safety Report 6107446-4 (Version None)
Quarter: 2009Q1

REPORT INFORMATION
  Report Type: 
  Country: None (occurrence: None)
  Receive Date: 20090309
  Receipt Date: 20090227
  Transmission Date: 20090719
  Serious: Yes (Death)
  Sender: FDA-Public Use
  Company Number: FR-ELI_LILLY_AND_COMPANY-FR200903000545

PATIENT
  Sex: Female

DRUGS (6)
  1. DROTRECOGIN ALFA (ACTIVATED) [Suspect]
     Indication: SEPSIS
     Dosage: 0.024 MG/KG, EVERY HOUR
     Route: 042
     Dates: start: 20061123, end: 20061124
  2. VOLUVEN /00375601/ [Concomitant]
     Indication: SEPSIS
     Dates: start: 20061120
  3. DOBUTREX [Concomitant]
     Dates: start: 20061123
  4. TAZOCILLINE [Concomitant]
     Indication: SEPSIS
     Dates: start: 20061120
  5. PERFALGAN [Concomitant]
     Indication: PAIN
     Dates: start: 20061120
  6. LEVOXYL [Concomitant]
     Indication: HYPOTHYROIDISM
     Dates: start: 20061120

REACTIONS (1)
  - CIRCULATORY COLLAPSE [None]
